FAERS Safety Report 9447854 (Version 1)
Quarter: 2013Q3

REPORT INFORMATION
  Report Type: Spontaneous
  Country: FR (occurrence: FR)
  Receive Date: 20130808
  Receipt Date: 20130808
  Transmission Date: 20140515
  Serious: Yes (Hospitalization)
  Sender: FDA-Public Use
  Company Number: FR-009507513-1308FRA000308

PATIENT
  Age: 83 Year
  Sex: Female

DRUGS (3)
  1. TIMOPTOL LP [Suspect]
     Dosage: 1 UNK, UNK
     Route: 047
  2. OLMETEC [Suspect]
     Dosage: 20 MG, QD
     Route: 048
  3. POVIDONE [Suspect]
     Dosage: UNK
     Route: 048
     Dates: start: 20130702

REACTIONS (1)
  - Hyponatraemia [Recovered/Resolved]
